FAERS Safety Report 8835504 (Version 2)
Quarter: 2013Q2

REPORT INFORMATION
  Report Type: Spontaneous
  Country: US (occurrence: US)
  Receive Date: 20121011
  Receipt Date: 20130514
  Transmission Date: 20140414
  Serious: Yes (Life-Threatening, Hospitalization, Other)
  Sender: FDA-Public Use
  Company Number: US-009507513-2010SP012136

PATIENT
  Sex: Female
  Weight: 72.58 kg

DRUGS (2)
  1. NUVARING [Suspect]
     Indication: CONTRACEPTION
     Dates: start: 200807, end: 200811
  2. HORMONAL CONTRACEPTIVES (UNSPECIFIED) [Suspect]
     Indication: CONTRACEPTION
     Dates: end: 2008

REACTIONS (11)
  - Organ failure [Unknown]
  - Pancreatitis [Recovered/Resolved]
  - Inflammation [Unknown]
  - Abdominal lymphadenopathy [Recovered/Resolved]
  - Ovarian cyst [Not Recovered/Not Resolved]
  - Anaemia [Unknown]
  - Mesenteric vein thrombosis [Not Recovered/Not Resolved]
  - Deep vein thrombosis [Unknown]
  - Gastritis [Unknown]
  - Gallbladder disorder [Unknown]
  - Hepatic function abnormal [Unknown]
